FAERS Safety Report 7397635-3 (Version None)
Quarter: 2011Q2

REPORT INFORMATION
  Report Type: 
  Country: None (occurrence: None)
  Receive Date: 20110406
  Receipt Date: 20110402
  Transmission Date: 20111010
  Serious: Yes (Other)
  Sender: FDA-Public Use
  Company Number: US-PFIZER INC-2009270887

PATIENT
  Sex: Male
  Weight: 61.224 kg

DRUGS (11)
  1. CHANTIX [Suspect]
     Indication: SMOKING CESSATION THERAPY
     Dosage: 0.5 MG, 1X/DAY
     Route: 048
     Dates: start: 20100101, end: 20100101
  2. CHANTIX [Suspect]
     Dosage: 1 MG, 2X/DAY
     Route: 048
     Dates: start: 20101001, end: 20100101
  3. LEXAPRO [Concomitant]
     Indication: DEPRESSION
     Dosage: 10 MG, UNK
     Route: 048
     Dates: end: 20101101
  4. ARMODAFINIL [Concomitant]
     Indication: SOMNOLENCE
     Dosage: 250 MG, 1X/DAY
     Route: 048
  5. CHANTIX [Suspect]
     Dosage: UNK
     Route: 048
     Dates: start: 20110201, end: 20110301
  6. TRICOR [Concomitant]
     Indication: BLOOD CHOLESTEROL ABNORMAL
     Dosage: 145 MG, 1X/DAY
     Route: 048
  7. DICLOFENAC [Concomitant]
     Indication: ARTHRITIS
     Dosage: 50 MG, 1X/DAY
  8. TRAZODONE [Concomitant]
     Indication: SLEEP DISORDER
     Dosage: 100 MG, 1X/DAY
  9. CHLORDIAZEPOXIDE [Concomitant]
     Indication: MENTAL DISORDER
     Dosage: 25 MG, 1X/DAY
  10. ZOCOR [Concomitant]
     Indication: BLOOD CHOLESTEROL ABNORMAL
     Dosage: 20 MG, 1X/DAY
     Route: 048
  11. TAMSULOSIN HYDROCHLORIDE [Concomitant]
     Indication: PROSTATOMEGALY
     Dosage: 0.4 MG, 1X/DAY
     Route: 048

REACTIONS (2)
  - AGGRESSION [None]
  - PERSONALITY CHANGE [None]
